FAERS Safety Report 9371130 (Version 1)
Quarter: 2013Q2

REPORT INFORMATION
  Report Type: Spontaneous
  Country: US (occurrence: None)
  Receive Date: 20130626
  Receipt Date: 20130626
  Transmission Date: 20140414
  Serious: Yes (Hospitalization)
  Sender: FDA-Public Use
  Company Number: None

PATIENT
  Age: 64 Year
  Sex: Female
  Weight: 71.22 kg

DRUGS (2)
  1. ALLOPURINOL [Suspect]
     Indication: GOUT
     Dosage: 1 DAILY
     Dates: start: 20130524, end: 20130612
  2. ALLOPURINOL [Suspect]
     Indication: RHEUMATOID ARTHRITIS
     Dosage: 1 DAILY
     Dates: start: 20130524, end: 20130612

REACTIONS (1)
  - Gastrointestinal disorder [None]
